FAERS Safety Report 9492228 (Version 1)
Quarter: 2013Q3

REPORT INFORMATION
  Report Type: Spontaneous
  Country: TR (occurrence: TR)
  Receive Date: 20130830
  Receipt Date: 20130830
  Transmission Date: 20140515
  Serious: Yes (Other)
  Sender: FDA-Public Use
  Company Number: TR-SANOFI-AVENTIS-2013SA085574

PATIENT
  Age: 7 Year
  Sex: Female

DRUGS (6)
  1. MYCOPHENOLATE MOFETIL [Suspect]
     Indication: IMMUNOSUPPRESSION
     Route: 065
  2. RIFAMPICIN [Interacting]
     Indication: BRUCELLOSIS
     Route: 065
  3. RIFAMPICIN [Interacting]
     Indication: BRUCELLOSIS
     Route: 065
  4. TACROLIMUS [Interacting]
     Indication: IMMUNOSUPPRESSION
     Route: 065
  5. TACROLIMUS [Interacting]
     Indication: IMMUNOSUPPRESSION
     Dosage: DOSE TRIPLED TO MAINTAIN NORMAL DRUG BLOOD LEVELS
     Route: 065
  6. TACROLIMUS [Interacting]
     Indication: IMMUNOSUPPRESSION
     Dosage: FOUR FOLD INCREASE
     Route: 065

REACTIONS (4)
  - Brucellosis [Recovered/Resolved]
  - Pyrexia [Recovered/Resolved]
  - Drug level decreased [Not Recovered/Not Resolved]
  - Drug interaction [Unknown]
